FAERS Safety Report 17515768 (Version 2)
Quarter: 2020Q3

REPORT INFORMATION
  Report Type: Spontaneous
  Country: US (occurrence: US)
  Receive Date: 20200309
  Receipt Date: 20200909
  Transmission Date: 20201102
  Serious: No
  Sender: FDA-Public Use
  Company Number: US-JNJFOC-20200238218

PATIENT
  Age: 60 Year
  Sex: Female
  Weight: 70.82 kg

DRUGS (14)
  1. ALEVE [Concomitant]
     Active Substance: NAPROXEN SODIUM
  2. TOPAMAX [Suspect]
     Active Substance: TOPIRAMATE
     Dosage: STARTED WITH 25 MG VARYING DOSES TITRATING UPTO 150 MG
     Route: 048
     Dates: start: 201911, end: 201912
  3. LIVALO [Concomitant]
     Active Substance: PITAVASTATIN CALCIUM
     Indication: BLOOD CHOLESTEROL ABNORMAL
  4. ZOFRAN [Concomitant]
     Active Substance: ONDANSETRON HYDROCHLORIDE
     Indication: NAUSEA
  5. ZOFRAN [Concomitant]
     Active Substance: ONDANSETRON HYDROCHLORIDE
     Indication: VOMITING
  6. MYRBETRIQ [Concomitant]
     Active Substance: MIRABEGRON
     Indication: MICTURITION URGENCY
     Dosage: RARELY TAKEN
  7. ATIVAN [Concomitant]
     Active Substance: LORAZEPAM
     Indication: MOTION SICKNESS
  8. TYLENOL [Concomitant]
     Active Substance: ACETAMINOPHEN
     Indication: ARTHRALGIA
     Dosage: 3350 OR 500 MG
  9. TOPAMAX [Suspect]
     Active Substance: TOPIRAMATE
     Route: 048
     Dates: start: 201912
  10. TOPAMAX [Suspect]
     Active Substance: TOPIRAMATE
     Indication: MIGRAINE WITHOUT AURA
     Route: 048
     Dates: start: 201911, end: 201912
  11. AMBIEN [Concomitant]
     Active Substance: ZOLPIDEM TARTRATE
     Indication: INSOMNIA
     Dosage: 5?10 MG
  12. FIORICET [Concomitant]
     Active Substance: ACETAMINOPHEN\BUTALBITAL\CAFFEINE
  13. FISH OIL [Concomitant]
     Active Substance: FISH OIL
  14. CALCIUM                            /00060701/ [Concomitant]
     Active Substance: CALCIUM

REACTIONS (5)
  - Anorgasmia [Recovering/Resolving]
  - Libido decreased [Not Recovered/Not Resolved]
  - Drug ineffective [Unknown]
  - Nephropathy [Recovering/Resolving]
  - Stress [Not Recovered/Not Resolved]

NARRATIVE: CASE EVENT DATE: 201911
